FAERS Safety Report 19645393 (Version 1)
Quarter: 2021Q3

REPORT INFORMATION
  Report Type: Other
  Country: US (occurrence: US)
  Receive Date: 20210802
  Receipt Date: 20210802
  Transmission Date: 20211014
  Serious: No
  Sender: FDA-Public Use
  Company Number: US-NEUROCRINE BIOSCIENCES INC.-2021NBI04014

PATIENT

DRUGS (3)
  1. ONGENTYS [Suspect]
     Active Substance: OPICAPONE
     Indication: PARKINSON^S DISEASE
     Dosage: 50 MILLIGRAM, QD EVERY NIGHT AT BEDTIME ON AN EMPTY STOMACH
     Route: 048
     Dates: start: 202101
  2. CARBIDOPA/LEVODOPA [Concomitant]
     Active Substance: CARBIDOPA\LEVODOPA
     Dosage: Q4 HRS, 5 TIMES A DAY
  3. RYTARY [Concomitant]
     Active Substance: CARBIDOPA\LEVODOPA
     Dosage: UNK

REACTIONS (3)
  - Dry mouth [Unknown]
  - Vision blurred [Unknown]
  - Diplopia [Unknown]

NARRATIVE: CASE EVENT DATE: 2021
